FAERS Safety Report 25525008 (Version 4)
Quarter: 2025Q3

REPORT INFORMATION
  Report Type: Spontaneous
  Country: US (occurrence: US)
  Receive Date: 20250707
  Receipt Date: 20250715
  Transmission Date: 20251020
  Serious: Yes (Other)
  Sender: SANOFI AVENTIS
  Company Number: US-SA-2025SA187516

PATIENT
  Sex: Female
  Weight: 81.36 kg

DRUGS (14)
  1. DUPIXENT [Suspect]
     Active Substance: DUPILUMAB
     Indication: Dermatitis atopic
     Dosage: 300 MG, QOW
     Route: 058
  2. KESIMPTA [Suspect]
     Active Substance: OFATUMUMAB
  3. HERBALS\TURMERIC [Concomitant]
     Active Substance: HERBALS\TURMERIC
  4. VITAMINS NOS [Concomitant]
     Active Substance: VITAMINS
  5. FISH OIL [Concomitant]
     Active Substance: FISH OIL
  6. VITAMIN D3 [Concomitant]
     Active Substance: CHOLECALCIFEROL
  7. MAGNESIUM [MAGNESIUM CHELATE] [Concomitant]
  8. SYNTHROID [Concomitant]
     Active Substance: LEVOTHYROXINE SODIUM
  9. SINGULAIR [Concomitant]
     Active Substance: MONTELUKAST SODIUM
  10. LYRICA [Concomitant]
     Active Substance: PREGABALIN
  11. EZETIMIBE [Concomitant]
     Active Substance: EZETIMIBE
  12. LEXAPRO [Concomitant]
     Active Substance: ESCITALOPRAM OXALATE
  13. MYRBETRIQ [Concomitant]
     Active Substance: MIRABEGRON
  14. MAC [Concomitant]
     Active Substance: CAPSAICIN\MENTHOL

REACTIONS (8)
  - Multiple sclerosis [Unknown]
  - General physical health deterioration [Unknown]
  - Migraine [Unknown]
  - Disturbance in attention [Unknown]
  - Nausea [Unknown]
  - Hair colour changes [Unknown]
  - Dermatitis atopic [Not Recovered/Not Resolved]
  - Product dose omission issue [Unknown]
